FAERS Safety Report 6662898-6 (Version None)
Quarter: 2010Q2

REPORT INFORMATION
  Report Type: 
  Country: None (occurrence: None)
  Receive Date: 20100401
  Receipt Date: 20100322
  Transmission Date: 20101027
  Serious: Yes (Other)
  Sender: FDA-Public Use
  Company Number: US-JNJFOC-20100101656

PATIENT
  Age: 89 Year
  Sex: Female
  Weight: 68.04 kg

DRUGS (7)
  1. TYLENOL [Suspect]
     Indication: ARTHRALGIA
     Route: 048
  2. TYLENOL [Suspect]
     Indication: ARTHRITIS
     Route: 048
  3. PLAVIX [Concomitant]
  4. DETROL LA [Concomitant]
     Indication: BLADDER DISORDER
  5. CITRACAL [Concomitant]
  6. ARIMIDEX [Concomitant]
     Indication: MASTECTOMY
  7. FEMARA [Concomitant]
     Indication: MASTECTOMY

REACTIONS (6)
  - DECREASED APPETITE [None]
  - GASTRITIS HAEMORRHAGIC [None]
  - MELAENA [None]
  - NAUSEA [None]
  - PRODUCT QUALITY ISSUE [None]
  - VOMITING [None]
